FAERS Safety Report 25766923 (Version 1)
Quarter: 2025Q3

REPORT INFORMATION
  Report Type: Spontaneous
  Country: EG (occurrence: EG)
  Receive Date: 20250905
  Receipt Date: 20250905
  Transmission Date: 20251021
  Serious: Yes (Disabling, Other)
  Sender: SANDOZ
  Company Number: EG-SANDOZ-SDZ2025EG064345

PATIENT
  Age: 20 Year
  Sex: Female
  Weight: 50 kg

DRUGS (6)
  1. COSENTYX [Suspect]
     Active Substance: SECUKINUMAB
     Indication: Prostatic specific antigen
     Dosage: 150 MG, QMO
     Route: 058
     Dates: start: 2019
  2. COSENTYX [Suspect]
     Active Substance: SECUKINUMAB
     Dosage: ONE PEN 150 MG ONCE MONTHLY
     Route: 058
  3. COSENTYX [Suspect]
     Active Substance: SECUKINUMAB
     Route: 058
  4. LEVOTHYROXINE SODIUM [Suspect]
     Active Substance: LEVOTHYROXINE SODIUM
     Indication: Hypothyroidism
     Dosage: 1 DF, QD (1 TABLET ONCE DAILY), START DATE: 2024
     Route: 048
  5. METHOTREXATE [Suspect]
     Active Substance: METHOTREXATE
     Indication: Prostatic specific antigen
     Dosage: UNK, QW
     Route: 058
     Dates: start: 2017
  6. MEMANTINE HYDROCHLORIDE [Suspect]
     Active Substance: MEMANTINE HYDROCHLORIDE
     Indication: Joint effusion
     Dosage: UNK, BID; END DATE: ONE YEAR AGO
     Route: 048

REACTIONS (10)
  - Cartilage graft [Unknown]
  - Cartilage graft [Unknown]
  - Paracentesis [Recovered/Resolved]
  - Joint effusion [Recovered/Resolved]
  - Joint effusion [Recovered/Resolved]
  - Hypothyroidism [Recovered/Resolved]
  - Arthropathy [Unknown]
  - White blood cell count decreased [Recovered/Resolved]
  - Walking aid user [Unknown]
  - Off label use [Unknown]

NARRATIVE: CASE EVENT DATE: 20211001
